APPROVED DRUG PRODUCT: QUINAPRIL HYDROCHLORIDE
Active Ingredient: QUINAPRIL HYDROCHLORIDE
Strength: EQ 40MG BASE
Dosage Form/Route: TABLET;ORAL
Application: A076240 | Product #004
Applicant: APOTEX INC
Approved: Jan 26, 2006 | RLD: No | RS: No | Type: DISCN